FAERS Safety Report 23363591 (Version 1)
Quarter: 2024Q1

REPORT INFORMATION
  Report Type: Spontaneous
  Country: US (occurrence: US)
  Receive Date: 20240103
  Receipt Date: 20240103
  Transmission Date: 20240410
  Serious: No
  Sender: FDA-Public Use
  Company Number: US-ALKERMES INC.-ALK-2023-004727

PATIENT
  Sex: Female

DRUGS (2)
  1. VIVITROL [Suspect]
     Active Substance: NALTREXONE
     Indication: Drug dependence
     Dosage: 380 MILLIGRAM, QMO
     Route: 030
  2. VIVITROL [Suspect]
     Active Substance: NALTREXONE
     Dosage: 380 MILLIGRAM, QMO (PREVIOUSLY)
     Route: 030

REACTIONS (4)
  - Product administered at inappropriate site [Recovered/Resolved]
  - Injection site swelling [Unknown]
  - Injection site induration [Unknown]
  - Injection site rash [Unknown]

NARRATIVE: CASE EVENT DATE: 20230101
